FAERS Safety Report 7907384-8 (Version None)
Quarter: 2011Q4

REPORT INFORMATION
  Report Type: 
  Country: None (occurrence: None)
  Receive Date: 20111109
  Receipt Date: 20111109
  Transmission Date: 20120403
  Serious: Yes (Hospitalization)
  Sender: FDA-Public Use
  Company Number: None

PATIENT
  Sex: Female
  Weight: 90 kg

DRUGS (15)
  1. MULTI-VITAMIN [Concomitant]
  2. FOSAMAX [Suspect]
     Indication: OSTEOPOROSIS
     Dosage: 70 MG WEEKLY ORAL 047
     Route: 048
     Dates: start: 20090101
  3. FOSAMAX [Suspect]
     Indication: OSTEOPENIA
     Dosage: 70 MG WEEKLY ORAL 047
     Route: 048
     Dates: start: 20090101
  4. FOSAMAX [Suspect]
     Indication: OSTEOPOROSIS
     Dosage: 70 MG WEEKLY ORAL 047
     Route: 048
     Dates: start: 20030101
  5. FOSAMAX [Suspect]
     Indication: OSTEOPENIA
     Dosage: 70 MG WEEKLY ORAL 047
     Route: 048
     Dates: start: 20030101
  6. FERROUS SULFATE TAB [Concomitant]
  7. LISINOPRIL [Concomitant]
  8. NEXIUM [Concomitant]
  9. SYNTHROID [Concomitant]
  10. TRILIPIX [Concomitant]
  11. ZETIA [Concomitant]
  12. NORVASC [Concomitant]
  13. ASPIRIN [Concomitant]
  14. LOVAZA [Concomitant]
  15. ZOLPIDEM [Concomitant]

REACTIONS (3)
  - ARTHRALGIA [None]
  - FEMUR FRACTURE [None]
  - DYSPNOEA [None]
